FAERS Safety Report 22316662 (Version 1)
Quarter: 2023Q2

REPORT INFORMATION
  Report Type: Spontaneous
  Country: PL (occurrence: PL)
  Receive Date: 20230514
  Receipt Date: 20230514
  Transmission Date: 20230722
  Serious: Yes (Death, Hospitalization, Other)
  Sender: FDA-Public Use
  Company Number: PL-BoehringerIngelheim-2023-BI-237178

PATIENT
  Age: 68 Year
  Sex: Male

DRUGS (9)
  1. PRADAXA [Suspect]
     Active Substance: DABIGATRAN ETEXILATE MESYLATE
     Indication: Product used for unknown indication
  2. Omnic Ocas 0.4 [Concomitant]
     Indication: Product used for unknown indication
  3. Atoris 40 [Concomitant]
     Indication: Product used for unknown indication
  4. AMLODIPINE BESYLATE [Concomitant]
     Active Substance: AMLODIPINE BESYLATE
     Indication: Product used for unknown indication
  5. BISOPROLOL [Concomitant]
     Active Substance: BISOPROLOL
     Indication: Product used for unknown indication
  6. Siofor 1000 [Concomitant]
     Indication: Product used for unknown indication
  7. ZEVESIN [Concomitant]
     Indication: Product used for unknown indication
  8. Glibetic [Concomitant]
     Indication: Product used for unknown indication
  9. RAMIPRIL [Concomitant]
     Active Substance: RAMIPRIL
     Indication: Product used for unknown indication

REACTIONS (3)
  - Ischaemic stroke [Fatal]
  - Brain stem syndrome [Fatal]
  - Vital functions abnormal [Fatal]
